FAERS Safety Report 5499684-9 (Version None)
Quarter: 2007Q4

REPORT INFORMATION
  Report Type: 
  Country: None (occurrence: None)
  Receive Date: 20071026
  Receipt Date: 20071015
  Transmission Date: 20080405
  Serious: Yes (Other)
  Sender: FDA-Public Use
  Company Number: US-PFIZER INC-2007086364

PATIENT
  Sex: Male
  Weight: 75 kg

DRUGS (9)
  1. LYRICA [Suspect]
     Indication: NEURALGIA
     Route: 048
  2. OXYCONTIN [Concomitant]
  3. PERCOCET [Concomitant]
  4. GABAPENTIN [Concomitant]
  5. AMBIEN [Concomitant]
  6. ALL OTHER THERAPEUTIC PRODUCTS [Concomitant]
  7. PROTONIX [Concomitant]
  8. QUININE SULFATE [Concomitant]
  9. CELEBREX [Concomitant]

REACTIONS (6)
  - BALANCE DISORDER [None]
  - HERNIA [None]
  - JOINT SWELLING [None]
  - PAIN [None]
  - TINNITUS [None]
  - VISUAL ACUITY REDUCED [None]
